FAERS Safety Report 23963524 (Version 2)
Quarter: 2024Q2

REPORT INFORMATION
  Report Type: Spontaneous
  Country: US (occurrence: US)
  Receive Date: 20240611
  Receipt Date: 20240620
  Transmission Date: 20240716
  Serious: No
  Sender: FDA-Public Use
  Company Number: US-HALEON-2181150

PATIENT
  Age: 52 Year
  Sex: Female

DRUGS (1)
  1. SENSODYNE RAPID RELIEF [Suspect]
     Active Substance: STANNOUS FLUORIDE
     Indication: Hyperaesthesia teeth
     Dates: start: 20240518, end: 20240605

REACTIONS (6)
  - Dermatitis contact [Recovered/Resolved]
  - Pharyngeal swelling [Recovered/Resolved]
  - Oral mucosal erythema [Recovered/Resolved]
  - Throat irritation [Recovered/Resolved]
  - Dysphagia [Recovered/Resolved]
  - Mouth swelling [Recovered/Resolved]

NARRATIVE: CASE EVENT DATE: 20240526
